FAERS Safety Report 25376115 (Version 1)
Quarter: 2025Q2

REPORT INFORMATION
  Report Type: Spontaneous
  Country: GB (occurrence: GB)
  Receive Date: 20250529
  Receipt Date: 20250529
  Transmission Date: 20250717
  Serious: Yes (Hospitalization)
  Sender: PFIZER
  Company Number: None

PATIENT
  Sex: Female
  Weight: 90 kg

DRUGS (1)
  1. RIMEGEPANT [Suspect]
     Active Substance: RIMEGEPANT
     Indication: Migraine without aura
     Dates: start: 20250517, end: 20250524

REACTIONS (2)
  - Migraine [Recovering/Resolving]
  - Photophobia [Recovered/Resolved]

NARRATIVE: CASE EVENT DATE: 20250523
